FAERS Safety Report 8022127-8 (Version None)
Quarter: 2012Q1

REPORT INFORMATION
  Report Type: 
  Country: None (occurrence: None)
  Receive Date: 20120104
  Receipt Date: 20111228
  Transmission Date: 20120608
  Serious: No
  Sender: FDA-Public Use
  Company Number: US-PFIZER INC-2011286082

PATIENT
  Sex: Female
  Weight: 77.098 kg

DRUGS (3)
  1. ZMAX [Suspect]
     Indication: UPPER RESPIRATORY TRACT INFECTION
  2. ZMAX [Suspect]
     Indication: LOWER RESPIRATORY TRACT INFECTION
     Dosage: 2 G, DAILY
     Route: 048
     Dates: start: 20111118, end: 20111119
  3. ZMAX [Suspect]
     Indication: BRONCHITIS

REACTIONS (5)
  - ABDOMINAL PAIN UPPER [None]
  - NAUSEA [None]
  - DIARRHOEA [None]
  - VOMITING [None]
  - ABDOMINAL DISTENSION [None]
